FAERS Safety Report 21403756 (Version 2)
Quarter: 2022Q4

REPORT INFORMATION
  Report Type: Spontaneous
  Country: US (occurrence: US)
  Receive Date: 20221003
  Receipt Date: 20221030
  Transmission Date: 20230113
  Serious: Yes (Death, Other)
  Sender: FDA-Public Use
  Company Number: US-JNJFOC-20221002607

PATIENT
  Age: 81 Year
  Sex: Female

DRUGS (1)
  1. OPSUMIT [Suspect]
     Active Substance: MACITENTAN
     Indication: Pulmonary arterial hypertension
     Dosage: 10 MG TAKE 1 TABLET BY MOUTH ONCE A DAY
     Route: 048
     Dates: start: 20220506

REACTIONS (2)
  - Death [Fatal]
  - Pulmonary arterial hypertension [Unknown]
